FAERS Safety Report 8576632-6 (Version None)
Quarter: 2012Q3

REPORT INFORMATION
  Report Type: 
  Country: None (occurrence: None)
  Receive Date: 20120807
  Receipt Date: 20120803
  Transmission Date: 20120928
  Serious: Yes (Death, Other)
  Sender: FDA-Public Use
  Company Number: US-GILEAD-2012-0056231

PATIENT
  Age: 30 Year
  Sex: Female

DRUGS (4)
  1. REYATAZ [Concomitant]
     Dosage: 300 MG, QD
     Route: 048
     Dates: start: 20111031, end: 20120115
  2. EMTRICITABINE/TENOFOVIR DISOPROXIL FUMARATE [Suspect]
     Indication: HIV INFECTION
     Dosage: 1 DF, QD
     Route: 048
     Dates: start: 20111031
  3. NORVIR [Concomitant]
     Indication: HIV INFECTION
     Dosage: 100 MG, QD
     Route: 048
     Dates: start: 20111031
  4. REYATAZ [Concomitant]
     Indication: HIV INFECTION
     Dosage: 400 UNK, UNK
     Route: 048

REACTIONS (2)
  - GESTATIONAL DIABETES [None]
  - STILLBIRTH [None]
